FAERS Safety Report 4479590-9 (Version None)
Quarter: 2004Q4

REPORT INFORMATION
  Report Type: 
  Country: None (occurrence: None)
  Receive Date: 20041018
  Receipt Date: 20041006
  Transmission Date: 20050328
  Serious: Yes (Life-Threatening)
  Sender: FDA-Public Use
  Company Number: 04GER0218

PATIENT
  Age: 75 Year
  Sex: Male

DRUGS (4)
  1. TIROFIBAN HYDROCHLORIDE [Suspect]
     Indication: ACUTE MYOCARDIAL INFARCTION
     Dosage: IV
     Route: 042
     Dates: start: 20040924
  2. ACETYLSALICYLIC ACID [Concomitant]
  3. ANTIMIOCROBIAL [Concomitant]
  4. HEPARIN [Concomitant]

REACTIONS (5)
  - ARRHYTHMIA [None]
  - EMBOLISM [None]
  - FIBRIN D DIMER INCREASED [None]
  - MUCOSAL HAEMORRHAGE [None]
  - THROMBOCYTOPENIA [None]
